FAERS Safety Report 17991016 (Version 3)
Quarter: 2021Q1

REPORT INFORMATION
  Report Type: Spontaneous
  Country: US (occurrence: US)
  Receive Date: 20200707
  Receipt Date: 20210309
  Transmission Date: 20210419
  Serious: Yes (Other)
  Sender: FDA-Public Use
  Company Number: US-ASTRAZENECA-2020SE84442

PATIENT
  Age: 24387 Day
  Sex: Female
  Weight: 77.1 kg

DRUGS (69)
  1. PRILOSEC [Suspect]
     Active Substance: OMEPRAZOLE MAGNESIUM
     Indication: GASTROOESOPHAGEAL REFLUX DISEASE
     Route: 048
  2. TIZANIDINE. [Concomitant]
     Active Substance: TIZANIDINE
     Dates: start: 20130813
  3. CYMBALTA [Concomitant]
     Active Substance: DULOXETINE HYDROCHLORIDE
     Dates: start: 20130816
  4. SIMVASTATIN. [Concomitant]
     Active Substance: SIMVASTATIN
     Dates: start: 20130624
  5. NYSTATIN. [Concomitant]
     Active Substance: NYSTATIN
  6. VALTREX [Concomitant]
     Active Substance: VALACYCLOVIR HYDROCHLORIDE
  7. NARCAN [Concomitant]
     Active Substance: NALOXONE HYDROCHLORIDE
  8. NEXIUM [Suspect]
     Active Substance: ESOMEPRAZOLE MAGNESIUM
     Indication: GASTROOESOPHAGEAL REFLUX DISEASE
     Route: 048
     Dates: start: 200501, end: 200812
  9. RANITIDINE. [Concomitant]
     Active Substance: RANITIDINE
     Dates: start: 20040903
  10. PROMETHAZINE [Concomitant]
     Active Substance: PROMETHAZINE HYDROCHLORIDE
     Dates: start: 20130703
  11. BUPROPION. [Concomitant]
     Active Substance: BUPROPION
     Dates: start: 20131227
  12. MUCINEX [Concomitant]
     Active Substance: GUAIFENESIN
  13. FLUCONAZOLE. [Concomitant]
     Active Substance: FLUCONAZOLE
  14. DOXYCYCLINE. [Concomitant]
     Active Substance: DOXYCYCLINE
  15. ACTOS [Concomitant]
     Active Substance: PIOGLITAZONE HYDROCHLORIDE
  16. MIRALAX [Concomitant]
     Active Substance: POLYETHYLENE GLYCOL 3350
  17. NEXIUM [Suspect]
     Active Substance: ESOMEPRAZOLE MAGNESIUM
     Indication: GASTROOESOPHAGEAL REFLUX DISEASE
     Route: 048
  18. NEXIUM [Suspect]
     Active Substance: ESOMEPRAZOLE MAGNESIUM
     Indication: GASTROOESOPHAGEAL REFLUX DISEASE
     Route: 048
     Dates: start: 20081120
  19. PRILOSEC [Suspect]
     Active Substance: OMEPRAZOLE MAGNESIUM
     Indication: GASTROOESOPHAGEAL REFLUX DISEASE
     Dosage: GENERIC
     Route: 065
     Dates: start: 20180604
  20. FAMOTIDINE. [Concomitant]
     Active Substance: FAMOTIDINE
     Dates: start: 20180702, end: 20180709
  21. AMOXICILLIN. [Concomitant]
     Active Substance: AMOXICILLIN
     Dates: start: 20131227
  22. CYCLOBENZAPRINE. [Concomitant]
     Active Substance: CYCLOBENZAPRINE
     Dates: start: 20140115
  23. VITAMIN B [Concomitant]
     Active Substance: VITAMIN B
  24. PRILOSEC [Suspect]
     Active Substance: OMEPRAZOLE MAGNESIUM
     Indication: GASTROOESOPHAGEAL REFLUX DISEASE
     Dosage: GENERIC
     Route: 065
     Dates: start: 20200905
  25. METOPROLOL. [Concomitant]
     Active Substance: METOPROLOL
     Dates: start: 20040903
  26. PROAIR HFA [Concomitant]
     Active Substance: ALBUTEROL SULFATE
  27. ZALEPLON. [Concomitant]
     Active Substance: ZALEPLON
  28. TRICOR [Concomitant]
     Active Substance: FENOFIBRATE
  29. NITROGLYCERIN. [Concomitant]
     Active Substance: NITROGLYCERIN
  30. BACLOFEN. [Concomitant]
     Active Substance: BACLOFEN
     Dates: start: 20141024
  31. PRILOSEC OTC [Concomitant]
     Active Substance: OMEPRAZOLE MAGNESIUM
     Dates: start: 20041018
  32. LYRICA [Concomitant]
     Active Substance: PREGABALIN
     Dates: start: 20130808
  33. OXYCODONE [Concomitant]
     Active Substance: OXYCODONE
     Dates: start: 20130814
  34. ONDANSETRON [Concomitant]
     Active Substance: ONDANSETRON
     Dates: start: 20140115
  35. KETOCONAZOL [Concomitant]
     Active Substance: KETOCONAZOLE
     Dates: start: 20150908
  36. ENALAPRIL [Concomitant]
     Active Substance: ENALAPRIL
  37. METOCLOPRAMIDE. [Concomitant]
     Active Substance: METOCLOPRAMIDE
  38. PREMARIN [Concomitant]
     Active Substance: ESTROGENS, CONJUGATED
  39. TOPROL XL [Concomitant]
     Active Substance: METOPROLOL SUCCINATE
  40. PRILOSEC [Suspect]
     Active Substance: OMEPRAZOLE MAGNESIUM
     Indication: GASTROOESOPHAGEAL REFLUX DISEASE
     Dosage: GENERIC
     Route: 065
     Dates: start: 20100225
  41. GEMFIBROZIL. [Concomitant]
     Active Substance: GEMFIBROZIL
     Dates: start: 20141124
  42. TRIAMCINOLON [Concomitant]
     Dates: start: 20040423
  43. LISINOPRIL. [Concomitant]
     Active Substance: LISINOPRIL
     Dates: start: 20041018
  44. LEVOTHYROXINE. [Concomitant]
     Active Substance: LEVOTHYROXINE
     Dates: start: 20130624
  45. AZITHROMYCIN ANHYDROUS. [Concomitant]
     Active Substance: AZITHROMYCIN ANHYDROUS
  46. CLOBETASOL [Concomitant]
     Active Substance: CLOBETASOL
  47. POTASSIUM CHLORIDE. [Concomitant]
     Active Substance: POTASSIUM CHLORIDE
  48. AMBIEN [Concomitant]
     Active Substance: ZOLPIDEM TARTRATE
  49. LIPITOR [Concomitant]
     Active Substance: ATORVASTATIN CALCIUM
  50. ARICEPT [Concomitant]
     Active Substance: DONEPEZIL HYDROCHLORIDE
  51. VIGAMOX [Concomitant]
     Active Substance: MOXIFLOXACIN HYDROCHLORIDE
  52. FORTAZ [Concomitant]
     Active Substance: CEFTAZIDIME SODIUM
  53. PRILOSEC [Suspect]
     Active Substance: OMEPRAZOLE MAGNESIUM
     Indication: GASTROOESOPHAGEAL REFLUX DISEASE
     Dosage: GENERIC
     Route: 065
     Dates: start: 20120605
  54. IBUPROFEN. [Concomitant]
     Active Substance: IBUPROFEN
     Indication: PAIN
     Dates: start: 2015, end: 2021
  55. ZOLPIDEM [Concomitant]
     Active Substance: ZOLPIDEM TARTRATE
     Dates: start: 20180115
  56. GLYBURIDE. [Concomitant]
     Active Substance: GLYBURIDE
     Dates: start: 20040505
  57. FLUOXETINE [Concomitant]
     Active Substance: FLUOXETINE HYDROCHLORIDE
     Dates: start: 20040505
  58. DIAZEPAM. [Concomitant]
     Active Substance: DIAZEPAM
     Dates: start: 20130826
  59. FLUVIRIN NOS [Concomitant]
     Active Substance: INFLUENZA VIRUS VACCINE
  60. MORPHIN [Concomitant]
     Active Substance: MORPHINE
  61. FEXOFENADINE [Concomitant]
     Active Substance: FEXOFENADINE HYDROCHLORIDE
  62. PRILOSEC [Suspect]
     Active Substance: OMEPRAZOLE MAGNESIUM
     Indication: GASTROOESOPHAGEAL REFLUX DISEASE
     Route: 048
     Dates: start: 200501, end: 200812
  63. HYDROCODONE [Concomitant]
     Active Substance: HYDROCODONE
     Dates: start: 20130903
  64. DULOXETINE. [Concomitant]
     Active Substance: DULOXETINE
     Dates: start: 20140102
  65. AMITRIPTYLINE [Concomitant]
     Active Substance: AMITRIPTYLINE
     Dates: start: 20130121
  66. ALENDRONATE [Concomitant]
     Active Substance: ALENDRONATE SODIUM
  67. FERROUS SULFATE. [Concomitant]
     Active Substance: FERROUS SULFATE
  68. LIDODERM [Concomitant]
     Active Substance: LIDOCAINE
  69. LEXAPRO [Concomitant]
     Active Substance: ESCITALOPRAM OXALATE

REACTIONS (2)
  - Acute kidney injury [Recovered/Resolved]
  - Chronic kidney disease [Not Recovered/Not Resolved]

NARRATIVE: CASE EVENT DATE: 20180709
